FAERS Safety Report 8960006 (Version 2)
Quarter: 2012Q4

REPORT INFORMATION
  Report Type: 
  Country: JP (occurrence: JP)
  Receive Date: 20121211
  Receipt Date: 20121226
  Transmission Date: 20130627
  Serious: Yes (Death, Disabling, Other)
  Sender: FDA-Public Use
  Company Number: JP-BAXTER-2012BAX026740

PATIENT
  Age: 93 Year
  Sex: Male

DRUGS (4)
  1. DIANEAL-N PD-2 1.5 PD SOLUTION [Suspect]
     Indication: RENAL FAILURE CHRONIC
     Route: 033
     Dates: end: 20121207
  2. DIANEAL-N PD-2 1.5 PD SOLUTION [Suspect]
     Route: 033
     Dates: end: 20121207
  3. EXTRANEAL PD SOLUTION [Suspect]
     Indication: RENAL FAILURE CHRONIC
     Route: 033
     Dates: end: 20121207
  4. MORPHINE [Suspect]
     Indication: LIVER CARCINOMA
     Route: 065
     Dates: end: 20121207

REACTIONS (5)
  - Malignant neoplasm progression [Fatal]
  - Hepatic cancer [Fatal]
  - Respiratory arrest [Fatal]
  - Metastasis [Unknown]
  - Bedridden [Unknown]
